FAERS Safety Report 5090948-X (Version None)
Quarter: 2006Q3

REPORT INFORMATION
  Report Type: 
  Country: None (occurrence: None)
  Receive Date: 20060823
  Receipt Date: 20060811
  Transmission Date: 20061208
  Serious: Yes (Death, Other)
  Sender: FDA-Public Use
  Company Number: US200608002790

PATIENT
  Age: 86 Year
  Sex: Female

DRUGS (1)
  1. ZYPREXA [Suspect]
     Indication: INSOMNIA

REACTIONS (9)
  - BODY TEMPERATURE INCREASED [None]
  - CHROMATURIA [None]
  - CONTUSION [None]
  - FALL [None]
  - HAEMATOMA [None]
  - MENTAL STATUS CHANGES [None]
  - PERIORBITAL HAEMATOMA [None]
  - RENAL FAILURE [None]
  - URINARY RETENTION [None]
